FAERS Safety Report 9243351 (Version 1)
Quarter: 2013Q2

REPORT INFORMATION
  Report Type: Spontaneous
  Country: AU (occurrence: AU)
  Receive Date: 20130420
  Receipt Date: 20130420
  Transmission Date: 20140414
  Serious: Yes (Other)
  Sender: FDA-Public Use
  Company Number: AU-B.I. PHARMACEUTICALS,INC./RIDGEFIELD-2013-AU-00459AU

PATIENT
  Sex: Male

DRUGS (2)
  1. PRADAXA [Suspect]
  2. BRILINTA [Suspect]

REACTIONS (2)
  - Myocardial infarction [Unknown]
  - Epistaxis [Unknown]
